FAERS Safety Report 8485878-7 (Version None)
Quarter: 2012Q3

REPORT INFORMATION
  Report Type: 
  Country: None (occurrence: None)
  Receive Date: 20120703
  Receipt Date: 20120629
  Transmission Date: 20120928
  Serious: Yes (Other)
  Sender: FDA-Public Use
  Company Number: PHEH2012US008013

PATIENT
  Sex: Female

DRUGS (1)
  1. GILENYA [Suspect]
     Indication: MULTIPLE SCLEROSIS
     Dosage: 0.5 MG, QD
     Route: 048
     Dates: start: 20120328

REACTIONS (5)
  - CHEST PAIN [None]
  - BURNING SENSATION [None]
  - FULL BLOOD COUNT DECREASED [None]
  - WHITE BLOOD CELL COUNT DECREASED [None]
  - DYSPNOEA [None]
